FAERS Safety Report 8985897 (Version 1)
Quarter: 2012Q4

REPORT INFORMATION
  Report Type: 
  Country: US (occurrence: US)
  Receive Date: 20121226
  Receipt Date: 20121226
  Transmission Date: 20130627
  Serious: Yes (Other)
  Sender: FDA-Public Use
  Company Number: US-PFIZER INC-2012325190

PATIENT
  Age: 57 Year
  Sex: Female

DRUGS (2)
  1. ADVIL [Suspect]
     Indication: PAIN
     Dosage: 200 mg, as needed
     Route: 048
     Dates: end: 20121219
  2. HYDROCHLOROTHIAZIDE [Concomitant]
     Indication: BLOOD PRESSURE INCREASED
     Dosage: 20 mg, daily

REACTIONS (9)
  - Autoimmune thyroiditis [Unknown]
  - Goitre [Unknown]
  - Hypothyroidism [Unknown]
  - Tracheal deviation [Unknown]
  - Dysphagia [Unknown]
  - Pneumonia [Unknown]
  - Influenza [Unknown]
  - Inflammation [Unknown]
  - Pain [Unknown]
